FAERS Safety Report 24400898 (Version 1)
Quarter: 2024Q4

REPORT INFORMATION
  Report Type: Spontaneous
  Country: GB (occurrence: GB)
  Receive Date: 20241006
  Receipt Date: 20241006
  Transmission Date: 20250114
  Serious: Yes (Other)
  Sender: BOEHRINGER INGELHEIM
  Company Number: None

PATIENT
  Age: 61 Year
  Sex: Male
  Weight: 89 kg

DRUGS (17)
  1. EMPAGLIFLOZIN [Suspect]
     Active Substance: EMPAGLIFLOZIN
     Indication: Ill-defined disorder
     Route: 048
     Dates: start: 20240923, end: 20240930
  2. ISOPROPYL MYRISTATE\MINERAL OIL [Concomitant]
     Active Substance: ISOPROPYL MYRISTATE\MINERAL OIL
     Indication: Ill-defined disorder
     Dosage: USE AS NEEDED?FORN OF ADMIN: TPP YC - PLEASE RECLASSIFY
     Dates: start: 20240730, end: 20240827
  3. FEXOFENADINE [Concomitant]
     Active Substance: FEXOFENADINE HYDROCHLORIDE
     Indication: Ill-defined disorder
     Dosage: FORN OF ADMIN: TPP YC - PLEASE RECLASSIFY
     Dates: start: 20240730, end: 20240829
  4. CLOBETASONE BUTYRATE [Concomitant]
     Active Substance: CLOBETASONE BUTYRATE
     Indication: Ill-defined disorder
     Dosage: APPLY 1-2 TIMES/DAY?FORN OF ADMIN: TPP YC - PLEASE RECLASSIFY
     Dates: start: 20240705, end: 20240802
  5. PREDNISOLONE [Concomitant]
     Active Substance: PREDNISOLONE
     Indication: Ill-defined disorder
     Dosage: 6 PER DAY FOR 7 DAYS?FORN OF ADMIN: TPP YC - PLEASE RECLASSIFY
     Dates: start: 20240716, end: 20240723
  6. LANSOPRAZOLE [Concomitant]
     Active Substance: LANSOPRAZOLE
     Indication: Ill-defined disorder
     Dosage: FOR REFLUX?FORN OF ADMIN: TPP YC - PLEASE RECLASSIFY
     Dates: start: 20240906
  7. POTASSIUM BICARBONATE\SODIUM ALGINATE [Concomitant]
     Active Substance: POTASSIUM BICARBONATE\SODIUM ALGINATE
     Indication: Ill-defined disorder
     Dosage: 5ML - 10ML 4 TIMES/DAY?FORN OF ADMIN: TPP YC - PLEASE RECLASSIFY
     Dates: start: 20240722
  8. BETAMETHASONE VALERATE\FUSIDIC ACID [Concomitant]
     Active Substance: BETAMETHASONE VALERATE\FUSIDIC ACID
     Indication: Ill-defined disorder
     Dosage: FORN OF ADMIN: TPP YC - PLEASE RECLASSIFY
     Dates: start: 20240801, end: 20240815
  9. MEIJUMET [Concomitant]
     Indication: Ill-defined disorder
     Dosage: TAKE ONE TABLET TWICE A DAY WITH MEALS?FORN OF ADMIN: TPP YC - PLEASE RECLASSIFY
  10. GLICLAZIDE [Concomitant]
     Active Substance: GLICLAZIDE
     Indication: Ill-defined disorder
     Dosage: ONE TABLET TWICE A DAY?FORN OF ADMIN: TPP YC - PLEASE RECLASSIFY
  11. BECONASE AQ [Concomitant]
     Active Substance: BECLOMETHASONE DIPROPIONATE MONOHYDRATE
     Indication: Ill-defined disorder
     Dosage: ONE SPRAY TO BE USED IN EACH NOSTRIL TWICE A DAY?FORN OF ADMIN: TPP YC - PLEASE RECLASSIFY
  12. ATORVASTATIN [Concomitant]
     Active Substance: ATORVASTATIN
     Indication: Ill-defined disorder
     Dosage: ONE TO BE TAKEN EACH DAY?FORN OF ADMIN: TPP YC - PLEASE RECLASSIFY
     Dates: start: 20240530
  13. BECLOMETHASONE DIPROPIONATE [Concomitant]
     Active Substance: BECLOMETHASONE DIPROPIONATE
     Indication: Ill-defined disorder
     Dosage: ONE SPRAY TO BE USED IN EACH NOSTRIL TWICE A DAY?FORN OF ADMIN: TPP YC - PLEASE RECLASSIFY
     Dates: start: 20240530
  14. CANDESARTAN [Concomitant]
     Active Substance: CANDESARTAN
     Indication: Ill-defined disorder
     Dosage: ONE TO BE TAKEN EACH DAY?FORN OF ADMIN: TPP YC - PLEASE RECLASSIFY
     Dates: start: 20240530
  15. GLICLAZIDE [Concomitant]
     Active Substance: GLICLAZIDE
     Indication: Ill-defined disorder
     Dosage: TAKE ONE TABLET TWICE DAILY?FORN OF ADMIN: TPP YC - PLEASE RECLASSIFY
     Dates: start: 20240530
  16. IBUPROFEN [Concomitant]
     Active Substance: IBUPROFEN
     Indication: Ill-defined disorder
     Dosage: APPLY 3-4 TIMES/DAY?FORN OF ADMIN: TPP YC - PLEASE RECLASSIFY
     Dates: start: 20240625
  17. DAPAGLIFLOZIN [Concomitant]
     Active Substance: DAPAGLIFLOZIN
     Indication: Ill-defined disorder
     Dosage: TAKE ONE DAILY?FORN OF ADMIN: TPP YC - PLEASE RECLASSIFY
     Dates: start: 20240911, end: 20240925

REACTIONS (4)
  - Tongue erythema [Recovered/Resolved]
  - Swollen tongue [Recovered/Resolved]
  - Paraesthesia oral [Recovered/Resolved]
  - Sleep disorder [Unknown]

NARRATIVE: CASE EVENT DATE: 20240923
